FAERS Safety Report 4642737-5 (Version None)
Quarter: 2005Q2

REPORT INFORMATION
  Report Type: 
  Country: None (occurrence: None)
  Receive Date: 20050422
  Receipt Date: 20050414
  Transmission Date: 20051028
  Serious: Yes (Hospitalization)
  Sender: FDA-Public Use
  Company Number: PHFR2005GB01531

PATIENT
  Age: 21 Year
  Sex: Female

DRUGS (7)
  1. OXYTOCIN [Suspect]
     Indication: LABOUR STIMULATION
     Dates: start: 20050311
  2. MAGNESIUM [Concomitant]
     Indication: BLOOD MAGNESIUM DECREASED
     Dosage: 2-4MMOL BID
     Route: 048
  3. SANDO K [Concomitant]
     Indication: BLOOD POTASSIUM DECREASED
     Dosage: 470 MG, BID
     Route: 065
  4. FOLIC ACID [Concomitant]
     Dosage: 5 MG, QD
     Route: 065
  5. FERROUS SULFATE TAB [Concomitant]
     Dosage: 200 MG, BID
     Route: 065
  6. SPIRONOLACTONE [Suspect]
     Indication: GITELMAN'S SYNDROME
     Dosage: 200 MG, QD
     Route: 065
  7. PROSTINE [Suspect]
     Indication: LABOUR STIMULATION
     Dosage: 5MG ONCE
     Route: 065

REACTIONS (10)
  - ARTIFICIAL RUPTURE OF MEMBRANES [None]
  - BLOOD PRESSURE INCREASED [None]
  - CAESAREAN SECTION [None]
  - DRUG EXPOSURE DURING PREGNANCY [None]
  - FOETAL ACIDOSIS [None]
  - FOETAL DISTRESS SYNDROME [None]
  - FOETAL HEART RATE DISORDER [None]
  - NORMAL NEWBORN [None]
  - PREGNANCY [None]
  - TACHYCARDIA FOETAL [None]
